FAERS Safety Report 7638088-7 (Version None)
Quarter: 2011Q3

REPORT INFORMATION
  Report Type: 
  Country: None (occurrence: None)
  Receive Date: 20110720
  Receipt Date: 20110706
  Transmission Date: 20111222
  Serious: Yes (Other)
  Sender: FDA-Public Use
  Company Number: 2011P1006284

PATIENT
  Age: 38 Year
  Sex: Female
  Weight: 99.7913 kg

DRUGS (4)
  1. LAMICTAL [Concomitant]
  2. FENTANYL [Suspect]
     Indication: FIBROMYALGIA
     Dosage: 1 PATCH;Q72H;TDER
     Route: 062
     Dates: start: 20100401
  3. FENTANYL [Suspect]
     Indication: INTERVERTEBRAL DISC DEGENERATION
     Dosage: 1 PATCH;Q72H;TDER
     Route: 062
     Dates: start: 20100401
  4. CELEXA [Concomitant]

REACTIONS (8)
  - HEART RATE INCREASED [None]
  - DYSGEUSIA [None]
  - LIMB INJURY [None]
  - VOMITING [None]
  - DEVICE BREAKAGE [None]
  - DEVICE LEAKAGE [None]
  - FALL [None]
  - TREMOR [None]
